FAERS Safety Report 5016645-4 (Version None)
Quarter: 2006Q2

REPORT INFORMATION
  Report Type: 
  Country: None (occurrence: None)
  Receive Date: 20060526
  Receipt Date: 20060517
  Transmission Date: 20061013
  Serious: Yes (Life-Threatening)
  Sender: FDA-Public Use
  Company Number: GXKR2006CH02866

PATIENT
  Age: 78 Year
  Sex: Female

DRUGS (10)
  1. LISINOPRIL [Suspect]
     Indication: ESSENTIAL HYPERTENSION
     Dosage: 10 MG, QD, ORAL
     Route: 048
     Dates: start: 20060216, end: 20060220
  2. GLUCOPHAGE [Suspect]
     Indication: DIABETES MELLITUS NON-INSULIN-DEPENDENT
     Dosage: 850 MG, BID, ORAL
     Route: 048
     Dates: start: 20000101, end: 20060220
  3. SINTROM [Concomitant]
  4. CLEXANE (ENOXAPARIN SODIUM, HEPARIN-FRACTION, SODIUM SALT) [Concomitant]
  5. PRAVASTATIN [Concomitant]
  6. TOREM (TORASEMIDE) [Concomitant]
  7. FOLVITE (FOLIC ACID) [Concomitant]
  8. ACETAMINOPHEN [Concomitant]
  9. LISINOPRIL/HYDROCHLOROTHIAZIDE (HYDROCHLOROTHIAZIDE, LISINOPRIL) [Concomitant]
  10. METOPROLOL TARTRATE [Concomitant]

REACTIONS (7)
  - CONDITION AGGRAVATED [None]
  - DIARRHOEA [None]
  - HAEMODIALYSIS [None]
  - METABOLIC ACIDOSIS [None]
  - NAUSEA [None]
  - RENAL FAILURE CHRONIC [None]
  - VOMITING [None]
